FAERS Safety Report 9349334 (Version 1)
Quarter: 2013Q2

REPORT INFORMATION
  Report Type: Spontaneous
  Country: PL (occurrence: PL)
  Receive Date: 20130614
  Receipt Date: 20130614
  Transmission Date: 20140414
  Serious: Yes (Life-Threatening, Hospitalization, Other)
  Sender: FDA-Public Use
  Company Number: PL-ABBOTT-13X-129-1103459-00

PATIENT
  Age: 19 Year
  Sex: Male

DRUGS (8)
  1. CLARITHROMYCIN [Suspect]
     Indication: PRODUCT USED FOR UNKNOWN INDICATION
  2. METAMIZOLE [Suspect]
     Indication: TOOTHACHE
     Dosage: 0.5 TO 2 G/D
  3. BRUFEN [Suspect]
     Indication: PRODUCT USED FOR UNKNOWN INDICATION
     Dosage: 400600 MG/D
  4. VANCOMYCIN [Suspect]
     Indication: PRODUCT USED FOR UNKNOWN INDICATION
  5. CEFTAZIDIME [Suspect]
     Indication: PRODUCT USED FOR UNKNOWN INDICATION
  6. MEROPENEM [Suspect]
     Indication: PRODUCT USED FOR UNKNOWN INDICATION
  7. AZITHROMYCIN [Suspect]
     Indication: PRODUCT USED FOR UNKNOWN INDICATION
  8. CEFUROXIME [Suspect]
     Indication: PRODUCT USED FOR UNKNOWN INDICATION

REACTIONS (5)
  - Histiocytosis haematophagic [Recovered/Resolved]
  - Bone marrow failure [Recovered/Resolved]
  - Plasma cell leukaemia [Recovered/Resolved]
  - Drug abuse [Unknown]
  - Drug ineffective [Recovered/Resolved]
